FAERS Safety Report 5269828-2 (Version None)
Quarter: 2007Q1

REPORT INFORMATION
  Report Type: 
  Country: None (occurrence: None)
  Receive Date: 20070320
  Receipt Date: 20070319
  Transmission Date: 20070707
  Serious: Yes (Hospitalization, Other)
  Sender: FDA-Public Use
  Company Number: GB-JNJFOC-20070304279

PATIENT
  Sex: Female
  Weight: 76 kg

DRUGS (10)
  1. REMICADE [Suspect]
     Indication: RHEUMATOID ARTHRITIS
     Route: 042
  2. METHOTREXATE [Concomitant]
     Route: 065
  3. PREDNISOLONE [Concomitant]
     Route: 065
  4. CALCICHEW D3 FORTE [Concomitant]
     Route: 065
  5. CAPSAICIN [Concomitant]
     Route: 065
  6. CO-PROXAMOL [Concomitant]
     Route: 065
  7. FOLIC ACID [Concomitant]
     Route: 065
  8. FOSAMAX [Concomitant]
     Route: 065
  9. LANSOPRAZOLE [Concomitant]
     Route: 065
  10. VOLTAREN [Concomitant]
     Route: 065

REACTIONS (1)
  - ATRIAL FIBRILLATION [None]
